FAERS Safety Report 5107514-X (Version None)
Quarter: 2006Q3

REPORT INFORMATION
  Report Type: 
  Country: None (occurrence: None)
  Receive Date: 20060913
  Receipt Date: 20060913
  Transmission Date: 20061208
  Serious: Yes (Other)
  Sender: FDA-Public Use
  Company Number: None

PATIENT
  Sex: Female
  Weight: 101.1521 kg

DRUGS (1)
  1. COPAXONE [Suspect]
     Indication: MULTIPLE SCLEROSIS
     Dosage: 20 MG SQ DAILY SQ
     Route: 058
     Dates: start: 20060901

REACTIONS (4)
  - HEADACHE [None]
  - LOCAL REACTION [None]
  - PROSTRATION [None]
  - PYREXIA [None]
